FAERS Safety Report 20745685 (Version 2)
Quarter: 2022Q2

REPORT INFORMATION
  Report Type: Spontaneous
  Country: US (occurrence: US)
  Receive Date: 20220425
  Receipt Date: 20220425
  Transmission Date: 20220721
  Serious: No
  Sender: FDA-Public Use
  Company Number: US-PFIZER INC-202200158145

PATIENT
  Sex: Male

DRUGS (1)
  1. DOFETILIDE [Suspect]
     Active Substance: DOFETILIDE
     Indication: Cardiac disorder
     Dosage: 500 MG

REACTIONS (3)
  - Hypoacusis [Unknown]
  - Off label use [Unknown]
  - Incorrect dosage administered [Unknown]
